FAERS Safety Report 7798320-6 (Version None)
Quarter: 2011Q4

REPORT INFORMATION
  Report Type: 
  Country: None (occurrence: None)
  Receive Date: 20111005
  Receipt Date: 20110928
  Transmission Date: 20120403
  Serious: Yes (Life-Threatening, Other)
  Sender: FDA-Public Use
  Company Number: US-ELI_LILLY_AND_COMPANY-US201110000148

PATIENT
  Sex: Female

DRUGS (2)
  1. HUMALOG [Suspect]
     Indication: DIABETES MELLITUS
     Dosage: UNK, PRN
     Dates: start: 19910101
  2. METFORMIN HCL [Concomitant]

REACTIONS (4)
  - ASTHENIA [None]
  - CARDIAC ARREST [None]
  - CARDIOMYOPATHY [None]
  - BLOOD GLUCOSE INCREASED [None]
